FAERS Safety Report 15733348 (Version 6)
Quarter: 2019Q3

REPORT INFORMATION
  Report Type: Spontaneous
  Country: US (occurrence: US)
  Receive Date: 20181218
  Receipt Date: 20190715
  Transmission Date: 20191004
  Serious: Yes (Hospitalization)
  Sender: FDA-Public Use
  Company Number: US-BRISTOL-MYERS SQUIBB COMPANY-BMS-2018-119062

PATIENT
  Sex: Female

DRUGS (1)
  1. ORENCIA [Suspect]
     Active Substance: ABATACEPT
     Indication: RHEUMATOID ARTHRITIS
     Dosage: 125 MILLIGRAM, QWK
     Route: 058

REACTIONS (7)
  - Product administration error [Unknown]
  - Injection site inflammation [Unknown]
  - Infection [Unknown]
  - Pain in extremity [Unknown]
  - Device malfunction [Unknown]
  - Hospitalisation [Unknown]
  - Injection site erythema [Unknown]
